FAERS Safety Report 7722078-X (Version None)
Quarter: 2011Q3

REPORT INFORMATION
  Report Type: 
  Country: None (occurrence: None)
  Receive Date: 20110831
  Receipt Date: 20110830
  Transmission Date: 20111222
  Serious: Yes (Death, Other)
  Sender: FDA-Public Use
  Company Number: PHHY2011NL77015

PATIENT
  Sex: Male

DRUGS (1)
  1. ZOMETA [Suspect]
     Indication: PROSTATE CANCER METASTATIC
     Dosage: 4 MG, PER 5 ML

REACTIONS (4)
  - FEELING ABNORMAL [None]
  - PROSTATE CANCER [None]
  - GENERAL PHYSICAL HEALTH DETERIORATION [None]
  - FATIGUE [None]
